FAERS Safety Report 6720375-8 (Version None)
Quarter: 2010Q2

REPORT INFORMATION
  Report Type: 
  Country: None (occurrence: None)
  Receive Date: 20100511
  Receipt Date: 20100504
  Transmission Date: 20101027
  Serious: Yes (Other)
  Sender: FDA-Public Use
  Company Number: BR-ABBOTT-09P-020-0612254-00

PATIENT
  Sex: Female
  Weight: 56 kg

DRUGS (7)
  1. HUMIRA [Suspect]
     Indication: RHEUMATOID ARTHRITIS
     Route: 058
     Dates: start: 20040101, end: 20090301
  2. HUMIRA [Suspect]
     Route: 058
  3. CELECOXIB [Concomitant]
     Indication: PAIN
     Route: 048
     Dates: start: 20060101
  4. METHOTREXATE [Concomitant]
     Indication: PAIN
     Route: 048
     Dates: start: 20090101
  5. CALTRATE 600 + D [Concomitant]
     Indication: BONE DISORDER
     Route: 048
     Dates: start: 20070101
  6. CALTRATE 600 + D [Concomitant]
     Indication: BONE EROSION
  7. CORUS [Concomitant]
     Indication: HYPERTENSION
     Route: 048
     Dates: start: 20081201

REACTIONS (4)
  - ARTHRALGIA [None]
  - ARTHRITIS [None]
  - FOOT DEFORMITY [None]
  - SWELLING [None]
